FAERS Safety Report 5902590-6 (Version None)
Quarter: 2008Q4

REPORT INFORMATION
  Report Type: 
  Country: None (occurrence: None)
  Receive Date: 20080924
  Receipt Date: 20080311
  Transmission Date: 20090506
  Serious: Yes (Other)
  Sender: FDA-Public Use
  Company Number: 6045693

PATIENT
  Age: 12 Year
  Sex: Female

DRUGS (9)
  1. SIMVASTATIN [Suspect]
     Indication: DRUG USE FOR UNKNOWN INDICATION
     Dosage: MAX 4 TABLETS ORAL
     Route: 048
     Dates: start: 20080309
  2. BISOPROLOL FUMARATE [Suspect]
     Indication: DRUG USE FOR UNKNOWN INDICATION
     Dosage: MAX 9 TABLETS ORAL
     Route: 048
     Dates: start: 20080309
  3. LEVOTHYROXINE SODIUM [Suspect]
     Indication: DRUG USE FOR UNKNOWN INDICATION
     Dosage: MAX 18 TABLETS ORAL
     Route: 048
     Dates: start: 20080309
  4. RAMIPRIL [Suspect]
     Indication: DRUG USE FOR UNKNOWN INDICATION
     Dosage: MAX 5 TABLETS ORAL
     Route: 048
     Dates: start: 20080309
  5. SERTRALINE [Suspect]
     Indication: DRUG USE FOR UNKNOWN INDICATION
     Dosage: MAX 10 TABLETS ORAL
     Route: 048
     Dates: start: 20080309
  6. RANITIDINE HCL [Suspect]
     Indication: DRUG USE FOR UNKNOWN INDICATION
     Dosage: AMX 10 - 20 TABLETS ORAL
     Route: 048
     Dates: start: 20080309
  7. PANTOPRAZOLE SODIUM [Suspect]
     Indication: DRUG USE FOR UNKNOWN INDICATION
     Dosage: MAX 3 TABLETS ORAL
     Route: 048
     Dates: start: 20080309
  8. TORSEMIDE [Suspect]
     Indication: DRUG USE FOR UNKNOWN INDICATION
     Dosage: MAX 8 TABLETS ORAL
     Route: 048
     Dates: start: 20080309
  9. TRIMINEURIN  (TRIMIPRAMINE MALEATE) [Suspect]
     Indication: DRUG USE FOR UNKNOWN INDICATION
     Dosage: MAX 8 TABLETS ORAL
     Route: 048
     Dates: start: 20080309

REACTIONS (2)
  - FATIGUE [None]
  - MULTIPLE DRUG OVERDOSE INTENTIONAL [None]
